FAERS Safety Report 13593233 (Version 2)
Quarter: 2017Q2

REPORT INFORMATION
  Report Type: Spontaneous
  Country: US (occurrence: US)
  Receive Date: 20170530
  Receipt Date: 20170606
  Transmission Date: 20170830
  Serious: Yes (Hospitalization)
  Sender: FDA-Public Use
  Company Number: US-SA-2017SA054067

PATIENT
  Age: 61 Year
  Sex: Female
  Weight: 64.22 kg

DRUGS (4)
  1. LANTUS SOLOSTAR [Suspect]
     Active Substance: INSULIN GLARGINE
     Indication: TYPE 2 DIABETES MELLITUS
     Dosage: DOSE:56 UNIT(S)
     Dates: start: 2013
  2. METFORMIN [Concomitant]
     Active Substance: METFORMIN HYDROCHLORIDE
     Indication: BLOOD GLUCOSE ABNORMAL
     Dosage: 1000 (UNIT NOT PROVIDED) TWO TIMES DAILY
     Dates: start: 201202
  3. LANTUS SOLOSTAR [Suspect]
     Active Substance: INSULIN GLARGINE
     Indication: TYPE 2 DIABETES MELLITUS
     Dosage: DOSE:30 UNIT(S)
     Route: 051
  4. SOLOSTAR [Concomitant]
     Active Substance: DEVICE
     Dates: start: 2013

REACTIONS (8)
  - Visual impairment [Unknown]
  - Thyroid disorder [Unknown]
  - Fall [Unknown]
  - Product use issue [Unknown]
  - Blood glucose increased [Unknown]
  - Hypertension [Unknown]
  - Cardiac disorder [Unknown]
  - Arthropathy [Unknown]
